FAERS Safety Report 24052300 (Version 3)
Quarter: 2024Q3

REPORT INFORMATION
  Report Type: Spontaneous
  Country: US (occurrence: US)
  Receive Date: 20240704
  Receipt Date: 20240812
  Transmission Date: 20241017
  Serious: No
  Sender: SANDOZ
  Company Number: US-SANDOZ-SDZ2024US062877

PATIENT
  Age: 56 Year
  Sex: Female

DRUGS (1)
  1. COMBIPATCH [Suspect]
     Active Substance: ESTRADIOL\NORETHINDRONE ACETATE
     Indication: Menopausal symptoms
     Dosage: 0.05/0.14
     Route: 062
     Dates: start: 202406

REACTIONS (3)
  - Product adhesion issue [Recovered/Resolved]
  - Therapeutic product ineffective [Not Recovered/Not Resolved]
  - Product dose omission issue [Not Recovered/Not Resolved]

NARRATIVE: CASE EVENT DATE: 20240601
